FAERS Safety Report 4300235-2 (Version None)
Quarter: 2004Q1

REPORT INFORMATION
  Report Type: 
  Country: None (occurrence: None)
  Receive Date: 20040209
  Receipt Date: 20040123
  Transmission Date: 20041129
  Serious: Yes (Death)
  Sender: FDA-Public Use
  Company Number: 235046

PATIENT
  Age: 66 Year
  Sex: Male
  Weight: 73 kg

DRUGS (5)
  1. NOVOSEVEN [Suspect]
     Indication: HAEMORRHAGE
     Dosage: 200 UG/KG (TOTAL OF 2 DOSES); INTRAVENOUS
     Route: 042
     Dates: start: 20000522, end: 20000522
  2. TRANEXAMIC ACID [Concomitant]
  3. PLASMA [Concomitant]
  4. CRYOPRECIPITATED AHF [Concomitant]
  5. PLATELETS [Concomitant]

REACTIONS (2)
  - MULTI-ORGAN FAILURE [None]
  - PULMONARY EMBOLISM [None]
